FAERS Safety Report 5176738-8 (Version None)
Quarter: 2006Q4

REPORT INFORMATION
  Report Type: 
  Country: None (occurrence: None)
  Receive Date: 20061212
  Receipt Date: 20061212
  Transmission Date: 20070319
  Serious: Yes (Hospitalization)
  Sender: FDA-Public Use
  Company Number: None

PATIENT
  Age: 37 Year
  Sex: Female
  Weight: 51.6 kg

DRUGS (2)
  1. LEVOFLOXACIN [Suspect]
     Indication: URINARY TRACT INFECTION
     Dosage: 500 MG DAILY IV
     Route: 042
  2. MEPERIDINE HCL [Suspect]
     Indication: PAIN
     Dosage: 25 MG Q 4 HOURS SCHEDULE IV
     Route: 042

REACTIONS (6)
  - CONDITION AGGRAVATED [None]
  - GRAND MAL CONVULSION [None]
  - LOSS OF CONSCIOUSNESS [None]
  - PAIN [None]
  - PARAESTHESIA [None]
  - TONGUE BITING [None]
